FAERS Safety Report 13983142 (Version 2)
Quarter: 2017Q4

REPORT INFORMATION
  Report Type: Report from Study
  Country: US (occurrence: US)
  Receive Date: 20170918
  Receipt Date: 20171215
  Transmission Date: 20180321
  Serious: Yes (Other)
  Sender: FDA-Public Use
  Company Number: US-JNJFOC-20170818578

PATIENT
  Age: 64 Year
  Sex: Female

DRUGS (10)
  1. VITAMIN B12 [Concomitant]
     Active Substance: CYANOCOBALAMIN
  2. IMBRUVICA [Suspect]
     Active Substance: IBRUTINIB
     Indication: LYMPHOCYTIC LEUKAEMIA
     Route: 048
     Dates: start: 20161207
  3. DULOXETINE. [Concomitant]
     Active Substance: DULOXETINE
  4. COD LIVER [Concomitant]
     Active Substance: COD LIVER OIL
  5. LYRICA [Concomitant]
     Active Substance: PREGABALIN
  6. PRILOSEC [Concomitant]
     Active Substance: OMEPRAZOLE MAGNESIUM
  7. VITAMIN C [Concomitant]
     Active Substance: ASCORBIC ACID
  8. CALCIUM CITRATE WITH VITAMIN D [Concomitant]
     Active Substance: CALCIUM CITRATE\VITAMIN D
  9. VITAMIN B [Concomitant]
     Active Substance: VITAMIN B
  10. CALCIUM [Concomitant]
     Active Substance: CALCIUM

REACTIONS (2)
  - Cataract [Not Recovered/Not Resolved]
  - Cataract operation complication [Recovering/Resolving]

NARRATIVE: CASE EVENT DATE: 201708
